FAERS Safety Report 6175663-3 (Version None)
Quarter: 2009Q2

REPORT INFORMATION
  Report Type: 
  Country: None (occurrence: None)
  Receive Date: 20090429
  Receipt Date: 20090409
  Transmission Date: 20091009
  Serious: Yes (Other)
  Sender: FDA-Public Use
  Company Number: DAB-2009-00006

PATIENT
  Sex: Female

DRUGS (2)
  1. EPIRUBICIN [Suspect]
     Indication: DRUG USE FOR UNKNOWN INDICATION
  2. DOXORUBICIN HCL [Suspect]
     Indication: DRUG USE FOR UNKNOWN INDICATION

REACTIONS (4)
  - CROSS SENSITIVITY REACTION [None]
  - NAUSEA [None]
  - PANIC REACTION [None]
  - VOMITING [None]
